FAERS Safety Report 12890761 (Version 2)
Quarter: 2018Q1

REPORT INFORMATION
  Report Type: Spontaneous
  Country: US (occurrence: US)
  Receive Date: 20161027
  Receipt Date: 20180118
  Transmission Date: 20180508
  Serious: Yes (Hospitalization, Disabling, Other)
  Sender: FDA-Public Use
  Company Number: US-SAOL THERAPEUTICS-2016SAO00918

PATIENT
  Sex: Male

DRUGS (5)
  1. OTHER UNSPECIFIED PUMP MEDICATION [Suspect]
     Active Substance: UNSPECIFIED INGREDIENT
     Route: 037
  2. DILAUDID [Suspect]
     Active Substance: HYDROMORPHONE HYDROCHLORIDE
     Route: 037
  3. BACLOFEN. [Suspect]
     Active Substance: BACLOFEN
     Indication: PAIN
     Route: 037
  4. BACLOFEN. [Suspect]
     Active Substance: BACLOFEN
     Indication: POST LAMINECTOMY SYNDROME
  5. MORPHINE [Suspect]
     Active Substance: MORPHINE

REACTIONS (8)
  - Arthralgia [Not Recovered/Not Resolved]
  - Off label use [Unknown]
  - Bone graft [None]
  - Scar [Unknown]
  - Injury [Unknown]
  - Device infusion issue [Unknown]
  - Neurological complication associated with device [Not Recovered/Not Resolved]
  - Knee arthroplasty [Unknown]

NARRATIVE: CASE EVENT DATE: 20110802
